FAERS Safety Report 4502418-5 (Version None)
Quarter: 2004Q4

REPORT INFORMATION
  Report Type: 
  Country: None (occurrence: None)
  Receive Date: 20041110
  Receipt Date: 20041103
  Transmission Date: 20050328
  Serious: Yes (Death)
  Sender: FDA-Public Use
  Company Number: 2004US001312

PATIENT
  Age: 51 Year
  Sex: Female

DRUGS (6)
  1. AMBISOME [Suspect]
     Indication: FEBRILE NEUTROPENIA
     Dosage: 250.00 MG, UID/QD, INTRAVENOUS
     Route: 042
     Dates: start: 20041021, end: 20041022
  2. TIENAM (IMIPENEM, CILASTATIN, CILASTATIN SODIUM) [Concomitant]
  3. AMKIN (AMIKACIN SULFATE) [Concomitant]
  4. CIPROFLOXACIN [Concomitant]
  5. VANCOCIN HCL [Concomitant]
  6. BACTRIM DS [Concomitant]

REACTIONS (1)
  - CARDIAC ARREST [None]
